FAERS Safety Report 4310909-5 (Version None)
Quarter: 2004Q1

REPORT INFORMATION
  Report Type: 
  Country: None (occurrence: None)
  Receive Date: 20040303
  Receipt Date: 20040224
  Transmission Date: 20041129
  Serious: Yes (Other)
  Sender: FDA-Public Use
  Company Number: 04-01-0024

PATIENT
  Age: 54 Year
  Sex: Female

DRUGS (5)
  1. CLOZAPINE [Suspect]
     Indication: PARANOIA
     Dosage: SEE IMAGE
     Route: 048
     Dates: start: 20000601
  2. CLOZAPINE [Suspect]
     Indication: SCHIZOPHRENIA
     Dosage: SEE IMAGE
     Route: 048
     Dates: start: 20000601
  3. PROPRANLOL [Concomitant]
  4. OXYBUTYNIN [Concomitant]
  5. CHEMOTHERAPY [Concomitant]

REACTIONS (2)
  - CHRONIC LYMPHOCYTIC LEUKAEMIA [None]
  - WHITE BLOOD CELL COUNT DECREASED [None]
